FAERS Safety Report 9135319 (Version 3)
Quarter: 2013Q2

REPORT INFORMATION
  Report Type: Report from Study
  Country: AU (occurrence: AU)
  Receive Date: 20130304
  Receipt Date: 20130524
  Transmission Date: 20140414
  Serious: Yes (Death, Hospitalization)
  Sender: FDA-Public Use
  Company Number: AU-ASTELLAS-2013US002216

PATIENT
  Age: 83 Year
  Sex: Male
  Weight: 88 kg

DRUGS (6)
  1. ERLOTINIB TABLET [Suspect]
     Indication: NON-SMALL CELL LUNG CANCER METASTATIC
     Dosage: 150 MG, UID/QD
     Route: 048
  2. FENTANYL [Concomitant]
     Indication: PRODUCT USED FOR UNKNOWN INDICATION
     Dosage: 12 MG, 1 IN 3 D
     Route: 065
  3. CITALOPRAM [Concomitant]
     Indication: DEPRESSION
     Dosage: 20 MG, UID/QD
     Route: 048
  4. ATENOLOL [Concomitant]
     Indication: BLOOD PRESSURE
     Dosage: 25 MG, UID/QD
     Route: 048
  5. CANDESARTAN [Concomitant]
     Indication: BLOOD PRESSURE
     Dosage: 16 MG, UID/QD
     Route: 048
  6. THYROXIN [Concomitant]
     Indication: HYPOTHYROIDISM
     Dosage: 100 MG, UID/QD
     Route: 048

REACTIONS (2)
  - Death [Fatal]
  - Diarrhoea [Recovered/Resolved]
